FAERS Safety Report 6372035-3 (Version None)
Quarter: 2009Q3

REPORT INFORMATION
  Report Type: 
  Country: None (occurrence: None)
  Receive Date: 20090917
  Receipt Date: 20090904
  Transmission Date: 20100115
  Serious: Yes (Other)
  Sender: FDA-Public Use
  Company Number: ADR19302009

PATIENT
  Age: 24 Year
  Sex: Female

DRUGS (1)
  1. SALBUTAMOL (MFR: UNKNOWN) [Suspect]
     Indication: PREMATURE LABOUR
     Dosage: UNKNOWN;INTRAVENOUS
     Route: 042

REACTIONS (3)
  - DIABETIC KETOACIDOSIS [None]
  - DRUG EXPOSURE DURING PREGNANCY [None]
  - SOMNOLENCE [None]
